FAERS Safety Report 14329781 (Version 1)
Quarter: 2017Q4

REPORT INFORMATION
  Report Type: Spontaneous
  Country: GB (occurrence: GB)
  Receive Date: 20171227
  Receipt Date: 20171227
  Transmission Date: 20180321
  Serious: Yes (Other)
  Sender: FDA-Public Use
  Company Number: GB-BIOMARINAP-GB-2017-116572

PATIENT
  Age: 5 Year
  Sex: Male

DRUGS (1)
  1. ALDURAZYME [Suspect]
     Active Substance: LARONIDASE
     Indication: PRODUCT USED FOR UNKNOWN INDICATION
     Dosage: 2000 UNITS, QW
     Route: 041

REACTIONS (5)
  - Abdominal pain upper [Recovered/Resolved]
  - Nodule [Recovering/Resolving]
  - Surgery [Unknown]
  - Tongue injury [Unknown]
  - Spinal disorder [Unknown]

NARRATIVE: CASE EVENT DATE: 20171109
